FAERS Safety Report 8537848-8 (Version None)
Quarter: 2012Q3

REPORT INFORMATION
  Report Type: 
  Country: None (occurrence: None)
  Receive Date: 20120725
  Receipt Date: 20120713
  Transmission Date: 20120928
  Serious: No
  Sender: FDA-Public Use
  Company Number: US-ASTRAZENECA-2011SE05179

PATIENT
  Age: 41 Year
  Sex: Male

DRUGS (10)
  1. SYMBICORT [Suspect]
     Indication: CHRONIC OBSTRUCTIVE PULMONARY DISEASE
     Dosage: 160/4.5 MCG TWICE A DAY
     Route: 055
     Dates: start: 20090101
  2. SYMBICORT [Suspect]
     Dosage: 1 PUFF TWICE DAILY
     Route: 055
  3. SYMBICORT [Suspect]
     Indication: BRONCHITIS
     Dosage: 160/4.5 MCG TWICE A DAY
     Route: 055
     Dates: start: 20090101
  4. SYMBICORT [Suspect]
     Dosage: 2 PUFF THREE TIMES DAILY
     Route: 055
  5. SYMBICORT [Suspect]
     Dosage: 2 PUFF THREE TIMES DAILY
     Route: 055
  6. SYMBICORT [Suspect]
     Indication: ASTHMA
     Dosage: 160/4.5 MCG TWICE A DAY
     Route: 055
     Dates: start: 20090101
  7. SYMBICORT [Suspect]
     Dosage: 2 PUFF THREE TIMES DAILY
     Route: 055
  8. SYMBICORT [Suspect]
     Dosage: 1 PUFF TWICE DAILY
     Route: 055
  9. ALBUTEROL [Concomitant]
  10. SYMBICORT [Suspect]
     Dosage: 1 PUFF TWICE DAILY
     Route: 055

REACTIONS (9)
  - MALAISE [None]
  - PNEUMONIA [None]
  - DRUG DOSE OMISSION [None]
  - GAIT DISTURBANCE [None]
  - INFLUENZA [None]
  - BEDRIDDEN [None]
  - INTENTIONAL DRUG MISUSE [None]
  - RESPIRATORY DISORDER [None]
  - DRUG PRESCRIBING ERROR [None]
